FAERS Safety Report 7371289-4 (Version None)
Quarter: 2011Q1

REPORT INFORMATION
  Report Type: 
  Country: None (occurrence: None)
  Receive Date: 20110321
  Receipt Date: 20110321
  Transmission Date: 20110831
  Serious: Yes (Hospitalization)
  Sender: FDA-Public Use
  Company Number: None

PATIENT
  Age: 47 Year
  Sex: Female
  Weight: 82.1011 kg

DRUGS (1)
  1. HUMIRA [Suspect]

REACTIONS (4)
  - CHEST PAIN [None]
  - HYPERSENSITIVITY [None]
  - LUPUS-LIKE SYNDROME [None]
  - INJECTION SITE RASH [None]
